FAERS Safety Report 4294759-4 (Version None)
Quarter: 2004Q1

REPORT INFORMATION
  Report Type: 
  Country: None (occurrence: None)
  Receive Date: 20040213
  Receipt Date: 20020516
  Transmission Date: 20041129
  Serious: Yes (Disabling, Other)
  Sender: FDA-Public Use
  Company Number: WAES 0205USA02052

PATIENT
  Age: 59 Year
  Sex: Male
  Weight: 79 kg

DRUGS (14)
  1. LOTREL [Concomitant]
     Indication: HYPERTENSION
     Route: 048
     Dates: start: 19990428
  2. WELLBUTRIN [Concomitant]
     Dates: start: 20000101, end: 20000201
  3. CELEBREX [Concomitant]
     Dates: start: 20000101
  4. KLONOPIN [Concomitant]
     Dates: start: 20010101
  5. CLONIDINE [Concomitant]
     Indication: HYPERTENSION
     Route: 048
     Dates: start: 19990428, end: 20000101
  6. CLONIDINE [Concomitant]
     Route: 048
     Dates: start: 20000128
  7. LABETALOL HYDROCHLORIDE [Concomitant]
     Indication: HYPERTENSION
     Route: 048
     Dates: start: 19990428, end: 20000801
  8. LABETALOL HYDROCHLORIDE [Concomitant]
     Route: 048
     Dates: start: 20000830
  9. CLARITIN [Concomitant]
     Dates: start: 20010101
  10. PAXIL [Concomitant]
     Route: 048
     Dates: start: 20000201, end: 20000101
  11. DILANTIN [Concomitant]
     Route: 048
     Dates: start: 20000101, end: 20000201
  12. RANITIDINE [Concomitant]
     Indication: GASTRIC DISORDER
     Route: 048
  13. VIOXX [Suspect]
     Indication: PAIN
     Route: 048
     Dates: start: 19990901, end: 20010101
  14. ZOLOFT [Concomitant]
     Indication: DEPRESSION
     Route: 048
     Dates: start: 20000101

REACTIONS (10)
  - AMNESIA [None]
  - BLOOD CHOLESTEROL INCREASED [None]
  - CAROTID ARTERY STENOSIS [None]
  - CARPAL TUNNEL SYNDROME [None]
  - CEREBRAL INFARCTION [None]
  - DEPRESSION [None]
  - DIZZINESS [None]
  - HYPERTENSION [None]
  - INTRACRANIAL ANEURYSM [None]
  - PEPTIC ULCER [None]
